FAERS Safety Report 6969237-1 (Version None)
Quarter: 2010Q3

REPORT INFORMATION
  Report Type: 
  Country: None (occurrence: None)
  Receive Date: 20100902
  Receipt Date: 20100826
  Transmission Date: 20110219
  Serious: Yes (Hospitalization)
  Sender: FDA-Public Use
  Company Number: GB-1183137

PATIENT
  Age: 60 Year
  Sex: Male

DRUGS (11)
  1. DEXAMETHASONE [Suspect]
     Route: 047
  2. UFTORAL (UFTORAL) TABLETS LOT# 7452828 TABLET [Suspect]
     Indication: RECTAL CANCER
     Route: 048
     Dates: start: 20100816, end: 20100818
  3. ASPIRIN [Concomitant]
  4. ATORVASTATIN CALCIUM [Concomitant]
  5. BISOPROLOL FUMARATE [Concomitant]
  6. CLOPIDOGREL [Concomitant]
  7. DOMPERIDONE (DOMPERIDONE) [Concomitant]
  8. DOSULEPIN HYDROCHLORIDE (DOSULEPIN HYDROCHLORIDE) [Concomitant]
  9. LEUCOVORIN CALCIUM [Concomitant]
  10. ISOSORBIDE MONONITRATE [Concomitant]
  11. RAMIPRIL [Concomitant]

REACTIONS (3)
  - ANGINA PECTORIS [None]
  - HYPERGLYCAEMIA [None]
  - MYOCARDIAL ISCHAEMIA [None]
